FAERS Safety Report 5503844-8 (Version None)
Quarter: 2007Q4

REPORT INFORMATION
  Report Type: 
  Country: None (occurrence: None)
  Receive Date: 20071030
  Receipt Date: 20071019
  Transmission Date: 20080405
  Serious: Yes (Hospitalization)
  Sender: FDA-Public Use
  Company Number: 2007333677

PATIENT
  Age: 36 Year
  Sex: Female

DRUGS (3)
  1. BENADRYL [Suspect]
     Indication: DRUG USE FOR UNKNOWN INDICATION
  2. PAXIL CR [Suspect]
     Indication: MAJOR DEPRESSION
     Dosage: 25 MG PER DAY (1 IN 1 D), ORAL
     Route: 048
     Dates: start: 20060201
  3. VALIUM [Concomitant]

REACTIONS (3)
  - CONVULSION [None]
  - OCULAR ICTERUS [None]
  - WEIGHT DECREASED [None]
